FAERS Safety Report 12797543 (Version 1)
Quarter: 2016Q3

REPORT INFORMATION
  Report Type: Spontaneous
  Country: US (occurrence: US)
  Receive Date: 20160929
  Receipt Date: 20160929
  Transmission Date: 20161109
  Serious: No
  Sender: FDA-Public Use
  Company Number: None

PATIENT
  Age: 52 Year
  Sex: Female

DRUGS (1)
  1. COPAXONE [Suspect]
     Active Substance: GLATIRAMER ACETATE

REACTIONS (6)
  - Rash macular [None]
  - Injection site erythema [None]
  - Injection site discomfort [None]
  - Injection site swelling [None]
  - Erythema [None]
  - Animal scratch [None]

NARRATIVE: CASE EVENT DATE: 20160919
